FAERS Safety Report 8534286-9 (Version None)
Quarter: 2012Q3

REPORT INFORMATION
  Report Type: 
  Country: None (occurrence: None)
  Receive Date: 20120724
  Receipt Date: 20120712
  Transmission Date: 20120928
  Serious: Yes (Hospitalization)
  Sender: FDA-Public Use
  Company Number: IT-BRISTOL-MYERS SQUIBB COMPANY-16768392

PATIENT
  Age: 92 Year
  Sex: Female

DRUGS (7)
  1. COUMADIN [Suspect]
     Indication: ATRIAL FIBRILLATION
     Dosage: 1DOSE/AS NECESSARY.
     Dates: start: 20080101, end: 20120702
  2. LANSOPRAZOLE [Concomitant]
     Indication: PROPHYLAXIS AGAINST GASTROINTESTINAL ULCER
     Route: 048
  3. TORSEMIDE [Concomitant]
     Indication: RENAL FAILURE CHRONIC
     Dosage: 1TAB:1DOSE
     Route: 048
  4. POTASSIUM CHLORIDE [Concomitant]
     Indication: HYPOKALAEMIA
     Dosage: 1 TAB:1DOSE
     Route: 048
  5. CARVEDILOL [Concomitant]
     Indication: HYPERTENSION
     Dosage: 1TAB:1DOSE
     Route: 048
  6. LASIX [Concomitant]
     Indication: HYPERTENSION
     Dosage: 25 MG TABS 1 DOSE
     Route: 048
  7. LANOXIN [Concomitant]
     Indication: CARDIAC FAILURE
     Dosage: 1TAB:1 DOSE
     Route: 048

REACTIONS (4)
  - ANAEMIA [None]
  - UROSEPSIS [None]
  - RECTAL HAEMORRHAGE [None]
  - VAGINAL HAEMORRHAGE [None]
